FAERS Safety Report 8408479-5 (Version None)
Quarter: 2012Q2

REPORT INFORMATION
  Report Type: 
  Country: None (occurrence: None)
  Receive Date: 20120604
  Receipt Date: 20120323
  Transmission Date: 20120825
  Serious: No
  Sender: FDA-Public Use
  Company Number: US-COVIDIEN/TYCO HEALTHCARE/MALLINCKRODT-T201201342

PATIENT
  Age: 56 Year
  Sex: Male

DRUGS (1)
  1. OCTREOSCAN [Suspect]
     Indication: RADIOISOTOPE SCAN
     Dosage: 6 MCI, SINGLE
     Dates: start: 20120322, end: 20120322

REACTIONS (1)
  - DRUG INEFFECTIVE [None]
